FAERS Safety Report 20644045 (Version 1)
Quarter: 2022Q1

REPORT INFORMATION
  Report Type: Report from Study
  Country: US (occurrence: US)
  Receive Date: 20220328
  Receipt Date: 20220328
  Transmission Date: 20220423
  Serious: Yes (Other)
  Sender: FDA-Public Use
  Company Number: US-UCBSA-2021036188

PATIENT
  Sex: Female

DRUGS (18)
  1. LEVETIRACETAM [Suspect]
     Active Substance: LEVETIRACETAM
     Indication: Seizure
     Dosage: UNK
  2. BRIVIACT [Suspect]
     Active Substance: BRIVARACETAM
     Indication: Seizure
     Dosage: 100 MILLIGRAM, 3X/DAY (TID)
  3. BRIVIACT [Suspect]
     Active Substance: BRIVARACETAM
     Indication: Seizure prophylaxis
  4. CELECOXIB [Concomitant]
     Active Substance: CELECOXIB
     Indication: Rheumatoid arthritis
  5. METHOTREXATE [Concomitant]
     Active Substance: METHOTREXATE
     Indication: Rheumatoid arthritis
  6. HYDROCODONE [Concomitant]
     Active Substance: HYDROCODONE
     Indication: Rheumatoid arthritis
  7. REMICADE [Concomitant]
     Active Substance: INFLIXIMAB
     Indication: Rheumatoid arthritis
  8. GABAPENTIN [Concomitant]
     Active Substance: GABAPENTIN
     Indication: Product used for unknown indication
  9. XCOPRI [Concomitant]
     Active Substance: CENOBAMATE
     Indication: Seizure prophylaxis
  10. LORAZEPAM [Concomitant]
     Active Substance: LORAZEPAM
     Indication: Seizure cluster
  11. FOLIC ACID [Concomitant]
     Active Substance: FOLIC ACID
     Indication: Anaemia
  12. FUROSEMIDE [Concomitant]
     Active Substance: FUROSEMIDE
     Indication: Fluid retention
  13. HYDROXYZINE [Concomitant]
     Active Substance: HYDROXYZINE HYDROCHLORIDE
     Indication: Pruritus
  14. THERATEARS [Concomitant]
     Active Substance: CARBOXYMETHYLCELLULOSE SODIUM
     Indication: Dry eye
  15. SENNOSIDES A AND B [Concomitant]
     Active Substance: SENNOSIDES A AND B
     Indication: Constipation prophylaxis
  16. MAGNESIUM [Concomitant]
     Active Substance: MAGNESIUM
     Indication: Pain in extremity
  17. FERROUS GLUCONATE [Concomitant]
     Active Substance: FERROUS GLUCONATE
     Indication: Anaemia
  18. CLARITIN [Concomitant]
     Active Substance: LORATADINE
     Indication: Adverse event

REACTIONS (6)
  - Rheumatoid arthritis [Unknown]
  - Knee arthroplasty [Recovered/Resolved]
  - Seizure [Unknown]
  - Dry mouth [Recovering/Resolving]
  - Product use issue [Unknown]
  - Overdose [Unknown]
